FAERS Safety Report 21620646 (Version 1)
Quarter: 2022Q4

REPORT INFORMATION
  Report Type: Other
  Country: None (occurrence: TR)
  Receive Date: 20221121
  Receipt Date: 20221121
  Transmission Date: 20230113
  Serious: Yes (Other)
  Sender: FDA-Public Use
  Company Number: TR-Innogenix, LLC-2135089

PATIENT
  Age: 33 Month
  Sex: Male
  Weight: 2.75 kg

DRUGS (2)
  1. HALOPERIDOL [Suspect]
     Active Substance: HALOPERIDOL
     Indication: Product used for unknown indication
     Route: 063
  2. AMISULPRIDE [Suspect]
     Active Substance: AMISULPRIDE
     Route: 063

REACTIONS (3)
  - Autism spectrum disorder [Unknown]
  - Exposure via breast milk [Unknown]
  - Foetal exposure during pregnancy [Unknown]
